FAERS Safety Report 4928338-X (Version None)
Quarter: 2006Q1

REPORT INFORMATION
  Report Type: 
  Country: None (occurrence: None)
  Receive Date: 20060228
  Receipt Date: 20060221
  Transmission Date: 20060701
  Serious: Yes (Hospitalization, Disabling)
  Sender: FDA-Public Use
  Company Number: US-MERCK-0602USA05407

PATIENT
  Age: 38 Year
  Sex: Male
  Weight: 91 kg

DRUGS (2)
  1. VIOXX [Suspect]
     Indication: BACK DISORDER
     Route: 048
     Dates: start: 19980101, end: 20040201
  2. TYLENOL (CAPLET) [Concomitant]
     Route: 065

REACTIONS (7)
  - BACK INJURY [None]
  - CONTUSION [None]
  - DEPRESSION [None]
  - HYPERTENSION [None]
  - INJURY [None]
  - JOINT INJURY [None]
  - MYOCARDIAL INFARCTION [None]
